FAERS Safety Report 7632860-5 (Version None)
Quarter: 2011Q3

REPORT INFORMATION
  Report Type: 
  Country: None (occurrence: None)
  Receive Date: 20110725
  Receipt Date: 20110713
  Transmission Date: 20111222
  Serious: Yes (Hospitalization)
  Sender: FDA-Public Use
  Company Number: PHHY2011US62899

PATIENT
  Sex: Male
  Weight: 66.15 kg

DRUGS (1)
  1. EXJADE [Suspect]
     Indication: SICKLE CELL ANAEMIA
     Dosage: 1500 MG, DAILY
     Route: 048
     Dates: start: 20100901, end: 20110301

REACTIONS (1)
  - UPPER RESPIRATORY TRACT INFECTION [None]
